FAERS Safety Report 5397084-3 (Version None)
Quarter: 2007Q3

REPORT INFORMATION
  Report Type: 
  Country: None (occurrence: None)
  Receive Date: 20070725
  Receipt Date: 20070719
  Transmission Date: 20080115
  Serious: Yes (Other)
  Sender: FDA-Public Use
  Company Number: GB-MERCK-0707GBR00080

PATIENT
  Sex: Female

DRUGS (3)
  1. SINGULAIR [Suspect]
     Indication: ASTHMA
     Route: 048
     Dates: start: 20070307, end: 20070330
  2. BECLOMETHASONE DIPROPIONATE [Concomitant]
  3. ALBUTEROL [Concomitant]

REACTIONS (3)
  - MUSCLE SPASMS [None]
  - MYALGIA [None]
  - PAIN [None]
